FAERS Safety Report 6538416-X (Version None)
Quarter: 2010Q1

REPORT INFORMATION
  Report Type: 
  Country: None (occurrence: None)
  Receive Date: 20100114
  Receipt Date: 20090310
  Transmission Date: 20100710
  Serious: No
  Sender: FDA-Public Use
  Company Number: US-TYCO HEALTHCARE/MALLINCKRODT-T200900651

PATIENT
  Age: 36 Year
  Sex: Female
  Weight: 81.633 kg

DRUGS (4)
  1. OXYCODONE HCL AND ACETAMINOPHEN [Suspect]
     Indication: PROCEDURAL PAIN
     Dosage: 5/325MG, 2 PILLS EVERY 3 HRS
     Route: 048
     Dates: start: 20090102, end: 20090104
  2. OXYCODONE HCL AND ACETAMINOPHEN [Suspect]
     Dosage: 5-325 MG, 3 PILLS EVERY 3 HRS
     Dates: start: 20090103, end: 20090103
  3. PERCOCET [Concomitant]
     Indication: PROCEDURAL PAIN
     Dosage: 2 PERCOCETS
     Dates: start: 20090102, end: 20090102
  4. ANALGESICS [Concomitant]
     Indication: PROCEDURAL PAIN
     Dosage: SEVERAL INJECTIONS
     Dates: start: 20090102, end: 20090102

REACTIONS (2)
  - DRUG INEFFECTIVE [None]
  - INCORRECT DOSE ADMINISTERED [None]
